FAERS Safety Report 25955246 (Version 1)
Quarter: 2025Q4

REPORT INFORMATION
  Report Type: Report from Study
  Country: US (occurrence: US)
  Receive Date: 20251024
  Receipt Date: 20251024
  Transmission Date: 20260118
  Serious: Yes (Hospitalization, Other)
  Sender: IPSEN BIOPHARMACEUTICALS, INC.
  Company Number: US-IPSEN Group, Research and Development-2021-22054

PATIENT
  Age: 73 Year
  Sex: Female
  Weight: 42.1 kg

DRUGS (9)
  1. ONIVYDE [Suspect]
     Active Substance: IRINOTECAN HYDROCHLORIDE
     Indication: Colon cancer
     Dosage: 86 MG EVERY 2 WEEKS
     Dates: start: 20210714
  2. ONIVYDE [Suspect]
     Active Substance: IRINOTECAN HYDROCHLORIDE
     Dates: start: 20210922, end: 20211006
  3. ONIVYDE [Suspect]
     Active Substance: IRINOTECAN HYDROCHLORIDE
     Dates: start: 20210922, end: 20211006
  4. TIPIRACIL HYDROCHLORIDE\TRIFLURIDINE [Suspect]
     Active Substance: TIPIRACIL HYDROCHLORIDE\TRIFLURIDINE
     Indication: Colon cancer
     Dosage: 50 MG BID FOR (1-5 DAY)
     Dates: start: 20210714, end: 20210908
  5. TIPIRACIL HYDROCHLORIDE\TRIFLURIDINE [Suspect]
     Active Substance: TIPIRACIL HYDROCHLORIDE\TRIFLURIDINE
     Dosage: 40 MG BID DAY 1-5
     Dates: start: 20210922
  6. AVASTIN [Concomitant]
     Active Substance: BEVACIZUMAB
     Dosage: DOSE NOT REPORTED
  7. AVASTIN [Concomitant]
     Active Substance: BEVACIZUMAB
     Dosage: DOSE NOT REPORTED
  8. AVASTIN [Concomitant]
     Active Substance: BEVACIZUMAB
     Dosage: DOSE NOT REPORTED
  9. AVASTIN [Concomitant]
     Active Substance: BEVACIZUMAB
     Dosage: DOSE NOT REPORTED

REACTIONS (9)
  - Sepsis [Unknown]
  - Abdominal pain [Recovering/Resolving]
  - Acute kidney injury [Recovered/Resolved]
  - Clostridium difficile colitis [Recovered/Resolved]
  - Neutropenia [Unknown]
  - Abdominal pain [Unknown]
  - Diarrhoea [Unknown]
  - Dysuria [Unknown]
  - Hyponatraemia [Recovered/Resolved]

NARRATIVE: CASE EVENT DATE: 20210801
